FAERS Safety Report 17426059 (Version 1)
Quarter: 2020Q1

REPORT INFORMATION
  Report Type: Report from Study
  Country: KR (occurrence: KR)
  Receive Date: 20200218
  Receipt Date: 20200218
  Transmission Date: 20200409
  Serious: Yes (Other)
  Sender: FDA-Public Use
  Company Number: KR-ROCHE-2545615

PATIENT
  Age: 64 Year
  Sex: Female

DRUGS (23)
  1. DOCETAXEL. [Suspect]
     Active Substance: DOCETAXEL
     Route: 042
     Dates: start: 20191213, end: 20191213
  2. TANTUM [BENZYDAMINE HYDROCHLORIDE] [Concomitant]
     Route: 065
     Dates: start: 20191008, end: 20191024
  3. TRAZODONE [Concomitant]
     Active Substance: TRAZODONE HYDROCHLORIDE
     Indication: INSOMNIA
     Route: 048
     Dates: start: 20191128
  4. DOCETAXEL. [Suspect]
     Active Substance: DOCETAXEL
     Indication: BREAST CANCER
     Route: 042
     Dates: start: 20191008
  5. DOCETAXEL. [Suspect]
     Active Substance: DOCETAXEL
     Route: 042
     Dates: start: 20191031, end: 20191031
  6. DOCETAXEL. [Suspect]
     Active Substance: DOCETAXEL
     Route: 042
     Dates: start: 20191121, end: 20191121
  7. TRASTUZUMAB. [Suspect]
     Active Substance: TRASTUZUMAB
     Route: 058
     Dates: start: 20191121, end: 20191121
  8. TRASTUZUMAB. [Suspect]
     Active Substance: TRASTUZUMAB
     Route: 058
     Dates: start: 20191213, end: 20191213
  9. LANSTON [Concomitant]
     Active Substance: LANSOPRAZOLE
     Route: 048
     Dates: start: 20191008, end: 20191030
  10. RINOEBASTEL [Concomitant]
     Dosage: 1 CAPSULE
     Route: 048
     Dates: start: 20191008, end: 20191108
  11. RIVOTRIL [Concomitant]
     Active Substance: CLONAZEPAM
     Indication: INSOMNIA
     Route: 048
     Dates: start: 20191121, end: 20191127
  12. PERTUZUMAB. [Suspect]
     Active Substance: PERTUZUMAB
     Dosage: THE SUBSEQUENT DOSE WAS REPEATED ON 08/OCT/2019, 31/OCT/2019, 21/NOV/2019 AND 13/DEC/2019.
     Route: 065
     Dates: start: 20190917
  13. TRASTUZUMAB. [Suspect]
     Active Substance: TRASTUZUMAB
     Route: 058
     Dates: start: 20191031, end: 20191031
  14. NEOPLATIN [CARBOPLATIN] [Concomitant]
     Route: 042
     Dates: start: 20191031, end: 20191031
  15. NEOPLATIN [CARBOPLATIN] [Concomitant]
     Route: 042
     Dates: start: 20191121, end: 20191121
  16. NEURONTIN [Concomitant]
     Active Substance: GABAPENTIN
     Indication: PERIPHERAL SENSORY NEUROPATHY
     Route: 048
     Dates: start: 20191128, end: 20191227
  17. PERTUZUMAB. [Suspect]
     Active Substance: PERTUZUMAB
     Indication: BREAST CANCER
     Route: 065
     Dates: start: 20190827
  18. NEOPLATIN [CARBOPLATIN] [Concomitant]
     Route: 042
     Dates: start: 20191008
  19. NEOPLATIN [CARBOPLATIN] [Concomitant]
     Route: 042
     Dates: start: 20191213, end: 20191213
  20. MIRTAPIN [Concomitant]
     Indication: INSOMNIA
     Route: 048
     Dates: start: 20191128
  21. HEBRON-F [Concomitant]
     Route: 048
     Dates: start: 20191008, end: 20191108
  22. GASTIN [Concomitant]
     Route: 048
     Dates: start: 20191008, end: 20191030
  23. TRASTUZUMAB. [Suspect]
     Active Substance: TRASTUZUMAB
     Indication: BREAST CANCER
     Route: 058
     Dates: start: 20191008

REACTIONS (5)
  - Haemorrhoids [Recovered/Resolved]
  - Myalgia [Recovered/Resolved]
  - Anaemia [Recovered/Resolved]
  - Bone marrow failure [Recovered/Resolved]
  - Rhinorrhoea [Recovered/Resolved]

NARRATIVE: CASE EVENT DATE: 20191008
